FAERS Safety Report 25248149 (Version 2)
Quarter: 2025Q2

REPORT INFORMATION
  Report Type: Spontaneous
  Country: DE (occurrence: DE)
  Receive Date: 20250429
  Receipt Date: 20250607
  Transmission Date: 20250716
  Serious: Yes (Hospitalization, Other)
  Sender: TOLMAR
  Company Number: DE-Tolmar-TLM-2025-00789

PATIENT
  Age: 86 Year
  Sex: Male

DRUGS (6)
  1. ELIGARD [Suspect]
     Active Substance: LEUPROLIDE ACETATE
     Indication: Product used for unknown indication
     Dosage: 22.5 MG EVERY 3 MONTHS
     Route: 065
     Dates: start: 20250103
  2. ELIGARD [Suspect]
     Active Substance: LEUPROLIDE ACETATE
     Indication: Product used for unknown indication
  3. ERLEADA [Suspect]
     Active Substance: APALUTAMIDE
     Indication: Product used for unknown indication
     Route: 065
     Dates: end: 20250131
  4. TORSEMIDE [Concomitant]
     Active Substance: TORSEMIDE
     Indication: Product used for unknown indication
     Dosage: 10 MILLIGRAM, QD
  5. IRBESARTAN [Concomitant]
     Active Substance: IRBESARTAN
     Indication: Hypertension
     Dosage: 150 MILLIGRAM, QD
  6. Timo-comod [Concomitant]
     Indication: Intraocular pressure test

REACTIONS (11)
  - Polyneuropathy [Not Recovered/Not Resolved]
  - Muscular weakness [Recovered/Resolved]
  - Pruritus [Recovered/Resolved]
  - Dysphagia [Recovered/Resolved]
  - Sensory disturbance [Recovered/Resolved]
  - Urine output decreased [Recovered/Resolved]
  - Eructation [Not Recovered/Not Resolved]
  - Memory impairment [Recovered/Resolved]
  - Chest pain [Recovered/Resolved]
  - Pollakiuria [Recovered/Resolved]
  - Micturition urgency [Recovered/Resolved]
